FAERS Safety Report 9425315 (Version 2)
Quarter: 2013Q4

REPORT INFORMATION
  Report Type: Spontaneous
  Country: GB (occurrence: GB)
  Receive Date: 20130729
  Receipt Date: 20131106
  Transmission Date: 20140711
  Serious: Yes (Hospitalization, Other)
  Sender: FDA-Public Use
  Company Number: PHHY2013GB078771

PATIENT
  Age: 48 Year
  Sex: Male

DRUGS (21)
  1. QUETIAPINE [Suspect]
     Indication: BIPOLAR DISORDER
     Dosage: 300 MG, AT NIGHT
     Route: 048
     Dates: end: 20130614
  2. QUETIAPINE [Suspect]
     Dosage: 50 MG, UNK
     Route: 048
     Dates: start: 20130522
  3. QUETIAPINE [Suspect]
     Route: 048
     Dates: end: 20130616
  4. PREGABALIN [Concomitant]
  5. LAMOTRIGINE [Concomitant]
     Dosage: 250 MG, QD (100 MG MORNING, 150MG AT NIGHT)
  6. TOLTERODINE [Concomitant]
     Dosage: 1 MG, UNK
  7. NYSTATIN [Concomitant]
  8. CHLORHEXIDINE [Concomitant]
  9. TRAMADOL [Concomitant]
     Dosage: 50 MG, QID, AS REQUIRED
  10. ATORVASTATIN [Concomitant]
     Dosage: 20 MG, QD
  11. IBUPROFEN [Concomitant]
     Dosage: 400 MG, TID, AS REQUIRED
  12. GABAPENTIN [Concomitant]
     Dosage: 300 MG, QD, AS REQUIRED
  13. ASPIRIN [Concomitant]
     Dosage: 75 MG, QD
  14. ANGITIL [Concomitant]
     Dosage: 1 DF, BID
  15. OMEPRAZOLE [Concomitant]
     Dosage: 20 MG, BID
  16. SALMETEROL [Concomitant]
     Route: 055
  17. FLUTICASONE [Concomitant]
     Route: 055
  18. MONTELUKAST [Concomitant]
     Dosage: 10 MG, QD, AT NIGHT
  19. MOMETASONE [Concomitant]
     Dosage: 50 UG, UNK
  20. SALBUTAMOL [Concomitant]
     Route: 055
  21. ZOPICLONE [Concomitant]
     Dosage: 7.5 MG, UNK

REACTIONS (6)
  - Muscular weakness [Recovering/Resolving]
  - Facial paresis [Recovering/Resolving]
  - Vertigo [Unknown]
  - Dysarthria [Recovering/Resolving]
  - Dizziness [Unknown]
  - Vision blurred [Unknown]
